FAERS Safety Report 7282250-2 (Version None)
Quarter: 2011Q1

REPORT INFORMATION
  Report Type: 
  Country: None (occurrence: None)
  Receive Date: 20110209
  Receipt Date: 20110127
  Transmission Date: 20110831
  Serious: Yes (Hospitalization)
  Sender: FDA-Public Use
  Company Number: US-RB-020309-11

PATIENT
  Age: 92 Year
  Sex: Female

DRUGS (6)
  1. COUMADIN [Concomitant]
  2. FOSAMAX [Concomitant]
  3. SYNTHROID [Concomitant]
  4. DIGOXIN [Concomitant]
  5. FELODIPINE [Concomitant]
  6. MUCINEX [Suspect]
     Dosage: PATIENT TOOK TWO TABLETS OF THE PRODUCT ON 26-DEC-2010
     Route: 048

REACTIONS (4)
  - ASTHENIA [None]
  - NAUSEA [None]
  - VOMITING [None]
  - MALAISE [None]
